FAERS Safety Report 23608380 (Version 1)
Quarter: 2024Q1

REPORT INFORMATION
  Report Type: Report from Study
  Country: BE (occurrence: BE)
  Receive Date: 20240307
  Receipt Date: 20240307
  Transmission Date: 20240410
  Serious: Yes (Other)
  Sender: FDA-Public Use
  Company Number: BE-JNJFOC-20170510557

PATIENT
  Age: 73 Year
  Sex: Male

DRUGS (5)
  1. IMBRUVICA [Suspect]
     Active Substance: IBRUTINIB
     Indication: Mantle cell lymphoma
     Dosage: 420 MG / ONCE A DAY
     Route: 048
     Dates: start: 20190723, end: 20190805
  2. IMBRUVICA [Suspect]
     Active Substance: IBRUTINIB
     Indication: Mantle cell lymphoma
     Dosage: 420 MG / ONCE A DAY
     Route: 048
     Dates: start: 20200210
  3. IMBRUVICA [Suspect]
     Active Substance: IBRUTINIB
     Indication: Mantle cell lymphoma
     Dosage: 560 MG / ONCE A DAY
     Route: 048
     Dates: start: 20160712, end: 20190702
  4. IMBRUVICA [Suspect]
     Active Substance: IBRUTINIB
     Indication: Mantle cell lymphoma
     Dosage: 560 MG / ONCE A DAY
     Route: 048
     Dates: start: 20191217, end: 20200209
  5. IMBRUVICA [Suspect]
     Active Substance: IBRUTINIB
     Indication: Mantle cell lymphoma
     Dosage: 420 MG / ONCE A DAY
     Route: 048
     Dates: start: 20190806, end: 20191216

REACTIONS (18)
  - Cataract [Recovered/Resolved]
  - Petechiae [Recovered/Resolved]
  - Pharyngeal erythema [Recovered/Resolved]
  - Rash [Recovered/Resolved]
  - Skin candida [Recovered/Resolved]
  - Haematoma [Not Recovered/Not Resolved]
  - Anaemia [Not Recovered/Not Resolved]
  - Superficial inflammatory dermatosis [Recovered/Resolved]
  - Atrial fibrillation [Not Recovered/Not Resolved]
  - Thrombocytopenia [Recovered/Resolved]
  - Lip ulceration [Recovered/Resolved]
  - Productive cough [Recovered/Resolved]
  - Orthopnoea [Recovered/Resolved]
  - Skin mass [Recovered/Resolved]
  - Nocturia [Not Recovered/Not Resolved]
  - Pulmonary oedema [Recovered/Resolved]
  - Glaucoma [Recovered/Resolved]
  - Dyspnoea [Not Recovered/Not Resolved]

NARRATIVE: CASE EVENT DATE: 20161018
